FAERS Safety Report 4350102-3 (Version None)
Quarter: 2004Q2

REPORT INFORMATION
  Report Type: 
  Country: None (occurrence: None)
  Receive Date: 20040429
  Receipt Date: 20040416
  Transmission Date: 20050107
  Serious: Yes (Other)
  Sender: FDA-Public Use
  Company Number: GB-GLAXOSMITHKLINE-B0330274A

PATIENT
  Sex: Female

DRUGS (2)
  1. AUGMENTIN [Suspect]
     Route: 048
  2. PREDNISOLONE [Concomitant]
     Indication: POLYMYALGIA

REACTIONS (7)
  - ANAPHYLACTIC REACTION [None]
  - BLOOD PRESSURE INCREASED [None]
  - DYSPNOEA [None]
  - OEDEMA [None]
  - PRURITUS [None]
  - RASH [None]
  - SPEECH DISORDER [None]
